FAERS Safety Report 14280632 (Version 1)
Quarter: 2017Q4

REPORT INFORMATION
  Report Type: Spontaneous
  Country: US (occurrence: None)
  Receive Date: 20171212
  Receipt Date: 20171212
  Transmission Date: 20180321
  Serious: No
  Sender: FDA-Public Use
  Company Number: None

PATIENT
  Age: 40 Year
  Sex: Female

DRUGS (1)
  1. SILDENAFIL TAB 20 MG AMNEAL PHARMACEUTICALS [Suspect]
     Active Substance: SILDENAFIL
     Dosage: 2 TABLETS TID ORAL
     Route: 048

REACTIONS (4)
  - Peripheral swelling [None]
  - Drug dose omission [None]
  - Insurance issue [None]
  - Dyspnoea [None]

NARRATIVE: CASE EVENT DATE: 20171210
